FAERS Safety Report 15621891 (Version 1)
Quarter: 2018Q4

REPORT INFORMATION
  Report Type: Spontaneous
  Country: UY (occurrence: UY)
  Receive Date: 20181115
  Receipt Date: 20181115
  Transmission Date: 20190205
  Serious: Yes (Hospitalization, Other)
  Sender: FDA-Public Use
  Company Number: UY-ALEMBIC PHARMACUETICALS LIMITED-2018SCAL000746

PATIENT
  Age: 8 Year
  Sex: Male

DRUGS (3)
  1. LAMOTRIGINE. [Interacting]
     Active Substance: LAMOTRIGINE
     Dosage: 50 MG, QD (TWO WEEKS LATER)
  2. VALPROIC ACID. [Interacting]
     Active Substance: VALPROIC ACID
     Indication: SEIZURE
     Dosage: 375 MG EVERY EIGHT HOURS
  3. LAMOTRIGINE. [Suspect]
     Active Substance: LAMOTRIGINE
     Indication: SEIZURE
     Dosage: 25 MG, QD

REACTIONS (12)
  - Septic shock [Recovered/Resolved]
  - Drug interaction [Recovered/Resolved]
  - Conjunctivitis [Recovered/Resolved]
  - Pyrexia [Recovered/Resolved]
  - Condition aggravated [Recovered/Resolved]
  - Mucosal ulceration [Recovered/Resolved]
  - Peripheral circulatory failure [Recovered/Resolved]
  - Stevens-Johnson syndrome [Recovered/Resolved]
  - Eyelid oedema [Recovered/Resolved]
  - Respiratory failure [Recovered/Resolved]
  - Rash macular [Recovered/Resolved]
  - Rash [Recovered/Resolved]
